FAERS Safety Report 20304297 (Version 1)
Quarter: 2022Q1

REPORT INFORMATION
  Report Type: Spontaneous
  Country: US (occurrence: US)
  Receive Date: 20220106
  Receipt Date: 20220106
  Transmission Date: 20220424
  Serious: No
  Sender: FDA-Public Use
  Company Number: US-JNJFOC-20211263919

PATIENT

DRUGS (1)
  1. VISINE A [Suspect]
     Active Substance: NAPHAZOLINE HYDROCHLORIDE\PHENIRAMINE MALEATE
     Indication: Product used for unknown indication
     Dosage: 1 OR 2 DROPS
     Route: 047

REACTIONS (2)
  - Application site pain [Unknown]
  - Hypersensitivity [Unknown]
